FAERS Safety Report 10486372 (Version 1)
Quarter: 2014Q3

REPORT INFORMATION
  Report Type: Spontaneous
  Country: JP (occurrence: None)
  Receive Date: 20140929
  Receipt Date: 20140929
  Transmission Date: 20150326
  Serious: Yes (Other)
  Sender: FDA-Public Use
  Company Number: 2014JP000613

PATIENT
  Age: 46 Year
  Sex: Male

DRUGS (10)
  1. LANSOPRAZOLE. [Concomitant]
     Active Substance: LANSOPRAZOLE
  2. CERNILTON N (HERBAL POLLEN NOS) [Concomitant]
  3. REGPARA (CINACALCET HYDROCHLORIDE) [Concomitant]
  4. FULSTAN (FALECALCITRIOL) [Concomitant]
  5. FERRIC CITRATE COORDINATION COMPLEX [Suspect]
     Active Substance: TETRAFERRIC TRICITRATE DECAHYDRATE
     Indication: HYPERPHOSPHATAEMIA
     Route: 048
     Dates: start: 20140728, end: 20140825
  6. BIOFERMIN /01617201/ (LACTOMIN) [Concomitant]
  7. KIKLIN (BIXALOMER) [Concomitant]
  8. PROCYLIN (BERAPROST SODIUM) [Concomitant]
  9. METHYCOBAL (MECOBALAMIN) [Concomitant]
  10. ULCERLMIN (SUCRALFATE) [Concomitant]

REACTIONS (1)
  - Polycythaemia [None]

NARRATIVE: CASE EVENT DATE: 20140806
